FAERS Safety Report 7466788-0 (Version None)
Quarter: 2011Q2

REPORT INFORMATION
  Report Type: 
  Country: None (occurrence: None)
  Receive Date: 20110509
  Receipt Date: 20100827
  Transmission Date: 20111010
  Serious: No
  Sender: FDA-Public Use
  Company Number: US-ALEXION-A201001091

PATIENT

DRUGS (2)
  1. SOLIRIS [Suspect]
     Indication: PAROXYSMAL NOCTURNAL HAEMOGLOBINURIA
     Dosage: UNK
     Route: 042
  2. HAEMOPHILUS INFLUENZAE B [Concomitant]
     Indication: IMMUNISATION
     Dosage: UNK
     Dates: start: 20100809, end: 20100809

REACTIONS (4)
  - CHROMATURIA [None]
  - HAEMOLYSIS [None]
  - ABDOMINAL PAIN [None]
  - PYREXIA [None]
